FAERS Safety Report 8152817-8 (Version None)
Quarter: 2012Q1

REPORT INFORMATION
  Report Type: 
  Country: None (occurrence: None)
  Receive Date: 20120216
  Receipt Date: 20120216
  Transmission Date: 20120608
  Serious: Yes (Death)
  Sender: FDA-Public Use
  Company Number: None

PATIENT
  Age: 58 Year
  Sex: Female

DRUGS (8)
  1. RECLAST [Suspect]
     Dosage: ONCE YEARLY FOR OSTEOPOROSIS
  2. MELOXICAM [Concomitant]
  3. BACLOFEN [Concomitant]
  4. CALCIUM [Concomitant]
  5. COLACE [Concomitant]
  6. MULTIVITAMIIN [Concomitant]
  7. VITAMIN D [Concomitant]
  8. CARBAMAZEPINE [Concomitant]

REACTIONS (4)
  - BODY TEMPERATURE INCREASED [None]
  - DISEASE COMPLICATION [None]
  - CARDIAC DISORDER [None]
  - CONVULSION [None]
